FAERS Safety Report 11321063 (Version 2)
Quarter: 2015Q3

REPORT INFORMATION
  Report Type: Spontaneous
  Country: HR (occurrence: HR)
  Receive Date: 20150729
  Receipt Date: 20150819
  Transmission Date: 20151125
  Serious: Yes (Death, Hospitalization)
  Sender: FDA-Public Use
  Company Number: HR-BAYER-2015-388083

PATIENT
  Age: 50 Year
  Sex: Male

DRUGS (4)
  1. LORATADINE. [Suspect]
     Active Substance: LORATADINE
     Indication: PSORIASIS
     Dosage: 10 MG, QD
     Route: 048
     Dates: start: 20150223
  2. LORATADINE. [Suspect]
     Active Substance: LORATADINE
     Indication: PRURITUS
     Dosage: UNK
  3. ELOCOM [Concomitant]
     Active Substance: MOMETASONE FUROATE
     Indication: PSORIASIS
  4. LORATADINE. [Suspect]
     Active Substance: LORATADINE
     Indication: PSORIASIS

REACTIONS (10)
  - Pain [Unknown]
  - Fatigue [Unknown]
  - Decreased appetite [Unknown]
  - Abdominal discomfort [Unknown]
  - Liver disorder [Unknown]
  - Nervousness [Unknown]
  - Dizziness [Unknown]
  - Death [Fatal]
  - Adverse event [Unknown]
  - Dry mouth [Unknown]

NARRATIVE: CASE EVENT DATE: 2015
